FAERS Safety Report 25184671 (Version 2)
Quarter: 2025Q2

REPORT INFORMATION
  Report Type: Spontaneous
  Country: JP (occurrence: JP)
  Receive Date: 20250410
  Receipt Date: 20250428
  Transmission Date: 20250716
  Serious: Yes (Hospitalization, Other)
  Sender: BAYER HEALTHCARE PHARMACEUTICALS INC.
  Company Number: JP-BAYER-2025A044315

PATIENT
  Age: 34 Year
  Sex: Female

DRUGS (2)
  1. MIRENA [Suspect]
     Active Substance: LEVONORGESTREL
     Indication: Contraception
     Dosage: 20?G/DAY
     Route: 015
     Dates: start: 20211016
  2. MIRENA [Suspect]
     Active Substance: LEVONORGESTREL
     Indication: Dysmenorrhoea

REACTIONS (6)
  - Uterine perforation [None]
  - Ovarian adhesion [None]
  - Fallopian tube adhesion [None]
  - Peritoneal adhesions [None]
  - Device dislocation [Not Recovered/Not Resolved]
  - Unexpected vaginal bleeding on hormonal IUD [None]

NARRATIVE: CASE EVENT DATE: 20240705
